FAERS Safety Report 21221931 (Version 4)
Quarter: 2022Q4

REPORT INFORMATION
  Report Type: Spontaneous
  Country: GB (occurrence: GB)
  Receive Date: 20220817
  Receipt Date: 20221124
  Transmission Date: 20230113
  Serious: Yes (Hospitalization, Other)
  Sender: FDA-Public Use
  Company Number: GB-ROCHE-1635271

PATIENT
  Age: 49 Year
  Sex: Female

DRUGS (79)
  1. DOCETAXEL [Suspect]
     Active Substance: DOCETAXEL
     Indication: HER2 positive breast cancer
     Dosage: 130 MG, Q3W
     Route: 042
     Dates: start: 20150210, end: 20150708
  2. LETROZOLE [Suspect]
     Active Substance: LETROZOLE
     Indication: HER2 positive breast cancer
     Dosage: 2.5 MG, QD
     Route: 042
     Dates: start: 20150729
  3. LETROZOLE [Suspect]
     Active Substance: LETROZOLE
     Dosage: UNK
     Route: 048
     Dates: start: 20170201, end: 20170722
  4. TRASTUZUMAB [Suspect]
     Active Substance: TRASTUZUMAB
     Indication: HER2 positive breast cancer
     Dosage: 399 MG, Q3W
     Route: 042
     Dates: start: 20150203, end: 20150203
  5. TRASTUZUMAB [Suspect]
     Active Substance: TRASTUZUMAB
     Dosage: 504 MG, 1X
     Route: 042
     Dates: start: 20150209, end: 20150209
  6. TRASTUZUMAB [Suspect]
     Active Substance: TRASTUZUMAB
     Dosage: 378 MG, Q3W
     Route: 042
     Dates: start: 20150303, end: 20151021
  7. TRASTUZUMAB [Suspect]
     Active Substance: TRASTUZUMAB
     Dosage: 378 MG, Q3W
     Route: 042
     Dates: start: 20150303, end: 20170201
  8. TRASTUZUMAB [Suspect]
     Active Substance: TRASTUZUMAB
     Dosage: 420 MG, Q3W
     Route: 042
     Dates: start: 20151111, end: 20151202
  9. TRASTUZUMAB [Suspect]
     Active Substance: TRASTUZUMAB
     Dosage: 378 MG, Q3W
     Route: 042
     Dates: start: 20151222, end: 20160113
  10. TRASTUZUMAB [Suspect]
     Active Substance: TRASTUZUMAB
     Dosage: 378 MG, Q3W
     Route: 042
     Dates: start: 20160210
  11. TRASTUZUMAB [Suspect]
     Active Substance: TRASTUZUMAB
     Dosage: 399 MG, Q3W
     Route: 042
     Dates: start: 20160203, end: 20160203
  12. TRASTUZUMAB [Suspect]
     Active Substance: TRASTUZUMAB
     Dosage: 378 MG, Q3W
     Route: 042
     Dates: start: 20160224, end: 20160406
  13. TRASTUZUMAB [Suspect]
     Active Substance: TRASTUZUMAB
     Dosage: 420 MG, Q3W
     Route: 042
     Dates: start: 20160427, end: 20170111
  14. TRASTUZUMAB [Suspect]
     Active Substance: TRASTUZUMAB
     Dosage: 240 MG, Q3W
     Route: 042
     Dates: start: 20170201, end: 20170722
  15. TRASTUZUMAB [Suspect]
     Active Substance: TRASTUZUMAB
     Dosage: 230 MG, Q3W
     Route: 042
     Dates: start: 20170816
  16. PERTUZUMAB [Suspect]
     Active Substance: PERTUZUMAB
     Indication: HER2 positive breast cancer
     Dosage: 840 MG, 1X
     Route: 042
     Dates: start: 20150209, end: 20150209
  17. PERTUZUMAB [Suspect]
     Active Substance: PERTUZUMAB
     Dosage: 420 MG, Q3W
     Route: 042
     Dates: start: 20150304, end: 20170201
  18. ADO-TRASTUZUMAB EMTANSINE [Suspect]
     Active Substance: ADO-TRASTUZUMAB EMTANSINE
     Indication: HER2 positive breast cancer
     Dosage: 504 MG, QD
     Route: 042
  19. ADO-TRASTUZUMAB EMTANSINE [Suspect]
     Active Substance: ADO-TRASTUZUMAB EMTANSINE
     Dosage: 240 MG, Q3W
     Route: 042
     Dates: start: 20170201, end: 20170722
  20. ADO-TRASTUZUMAB EMTANSINE [Suspect]
     Active Substance: ADO-TRASTUZUMAB EMTANSINE
     Dosage: 230 MG, Q3W
     Route: 042
     Dates: start: 20170816
  21. CALCIUM CARBONATE\CHOLECALCIFEROL [Concomitant]
     Active Substance: CALCIUM CARBONATE\CHOLECALCIFEROL
     Indication: Product used for unknown indication
     Dosage: 1.5 G, BID (PROPHALATIC TREATMENT WITH LETROZOLE)
     Route: 048
     Dates: start: 20150629, end: 20151202
  22. CALCIUM CARBONATE\CHOLECALCIFEROL [Concomitant]
     Active Substance: CALCIUM CARBONATE\CHOLECALCIFEROL
     Dosage: 1.5 G, BID
     Route: 048
     Dates: start: 20150729, end: 20151202
  23. CALCIUM CARBONATE\CHOLECALCIFEROL [Concomitant]
     Active Substance: CALCIUM CARBONATE\CHOLECALCIFEROL
     Dosage: 1.5 G, TID
     Route: 048
     Dates: start: 20151203, end: 20190813
  24. AMOXICILLIN [Concomitant]
     Active Substance: AMOXICILLIN
     Indication: Product used for unknown indication
     Dosage: 500 MG, (0.33 DAY)
     Route: 048
     Dates: start: 20160816
  25. AMOXICILLIN [Concomitant]
     Active Substance: AMOXICILLIN
     Dosage: 500 MG, TID
     Route: 048
     Dates: start: 20160817, end: 20160821
  26. AMOXICILLIN [Concomitant]
     Active Substance: AMOXICILLIN
     Dosage: 500 MG, (0.33 DAY)
     Route: 048
     Dates: start: 20161016, end: 20161023
  27. AMOXICILLIN [Concomitant]
     Active Substance: AMOXICILLIN
     Dosage: 500 MG, (0.33 DAY)
     Route: 048
     Dates: start: 20170821, end: 20170826
  28. CHLORHEXIDINE GLUCONATE [Concomitant]
     Active Substance: CHLORHEXIDINE GLUCONATE
     Indication: Product used for unknown indication
     Dosage: 10 ML
     Route: 065
     Dates: start: 20171001, end: 20171008
  29. AMOXICILLIN\CLAVULANATE POTASSIUM [Concomitant]
     Active Substance: AMOXICILLIN\CLAVULANATE POTASSIUM
     Indication: Product used for unknown indication
     Dosage: 500 MG, QD
     Route: 048
     Dates: start: 20170926
  30. AMOXICILLIN\CLAVULANATE POTASSIUM [Concomitant]
     Active Substance: AMOXICILLIN\CLAVULANATE POTASSIUM
     Dosage: 500 MG
     Route: 048
     Dates: start: 20171001, end: 20171008
  31. AMOXICILLIN\CLAVULANATE POTASSIUM [Concomitant]
     Active Substance: AMOXICILLIN\CLAVULANATE POTASSIUM
     Dosage: 400 MG, BID
     Route: 048
     Dates: start: 20171030, end: 20171105
  32. AMOXICILLIN\CLAVULANATE POTASSIUM [Concomitant]
     Active Substance: AMOXICILLIN\CLAVULANATE POTASSIUM
     Dosage: 500 MG, TID
     Route: 048
     Dates: start: 20180526, end: 20180601
  33. AMOXICILLIN\CLAVULANATE POTASSIUM [Concomitant]
     Active Substance: AMOXICILLIN\CLAVULANATE POTASSIUM
     Dosage: 500 MG
     Route: 048
     Dates: start: 20190530, end: 20190606
  34. MICONAZOLE NITRATE [Concomitant]
     Active Substance: MICONAZOLE NITRATE
     Indication: Rash
     Dosage: 40 MG, QD
     Route: 061
     Dates: start: 20161129, end: 20170101
  35. DEXAMETHASONE [Concomitant]
     Active Substance: DEXAMETHASONE
     Indication: Product used for unknown indication
     Dosage: 8 MG, BID  (0.5 PER DAY)
     Route: 048
     Dates: start: 20150524, end: 20150708
  36. DEXAMETHASONE [Concomitant]
     Active Substance: DEXAMETHASONE
     Dosage: 4 MG
     Route: 048
     Dates: start: 20170531, end: 20170602
  37. DEXAMETHASONE [Concomitant]
     Active Substance: DEXAMETHASONE
     Dosage: 2 MG, QD
     Route: 048
     Dates: start: 20170603, end: 20170604
  38. DEXAMETHASONE [Concomitant]
     Active Substance: DEXAMETHASONE
     Dosage: 2 MG, QD
     Route: 048
     Dates: start: 20170616, end: 20170616
  39. DEXAMETHASONE [Concomitant]
     Active Substance: DEXAMETHASONE
     Dosage: 4 MG (0.5 PER DAY)
     Route: 048
     Dates: start: 20170618, end: 20170619
  40. DEXAMETHASONE [Concomitant]
     Active Substance: DEXAMETHASONE
     Dosage: 2 MG (0. 5 PER DAY)
     Route: 048
     Dates: start: 20170620, end: 20170621
  41. DEXAMETHASONE [Concomitant]
     Active Substance: DEXAMETHASONE
     Dosage: 8 MG, QD
     Route: 048
     Dates: start: 20170616, end: 20170617
  42. DEXAMETHASONE [Concomitant]
     Active Substance: DEXAMETHASONE
     Dosage: 8 MG, BID (0.5 PER DAY)
     Route: 048
     Dates: start: 20170616, end: 20170617
  43. DEXAMETHASONE [Concomitant]
     Active Substance: DEXAMETHASONE
     Dosage: 4 MG, BID
     Route: 048
     Dates: start: 20170616, end: 20170617
  44. DEXAMETHASONE [Concomitant]
     Active Substance: DEXAMETHASONE
     Dosage: 2 MG, BID
     Route: 048
     Dates: start: 20170620, end: 20170621
  45. DEXAMETHASONE [Concomitant]
     Active Substance: DEXAMETHASONE
     Dosage: 8 MG, QD
     Route: 048
  46. BENZYDAMINE [Concomitant]
     Active Substance: BENZYDAMINE
     Indication: Product used for unknown indication
     Dosage: 10 ML, PRN
     Route: 065
     Dates: start: 20150307, end: 20150311
  47. DOXYCYCLINE [Concomitant]
     Active Substance: DOXYCYCLINE
     Indication: Dermatitis acneiform
     Dosage: 100 MG
     Route: 048
     Dates: start: 20150427, end: 20150608
  48. DOXYCYCLINE [Concomitant]
     Active Substance: DOXYCYCLINE
     Dosage: 100 MG, QD
     Route: 048
     Dates: start: 20171106, end: 20191019
  49. DOXYCYCLINE [Concomitant]
     Active Substance: DOXYCYCLINE
     Dosage: 100 MG, QD
     Route: 049
     Dates: start: 20171012, end: 20171029
  50. DOXYCYCLINE [Concomitant]
     Active Substance: DOXYCYCLINE
     Dosage: 100 MG, QD
     Route: 048
     Dates: start: 20190607
  51. DOXYCYCLINE [Concomitant]
     Active Substance: DOXYCYCLINE
     Dosage: 300 MG
     Route: 048
     Dates: start: 20190607
  52. BETAMETHASONE VALERATE\FUSIDIC ACID [Concomitant]
     Active Substance: BETAMETHASONE VALERATE\FUSIDIC ACID
     Indication: Product used for unknown indication
     Dosage: 0.1 %
     Route: 061
     Dates: start: 20151123
  53. FYBOGEL [Concomitant]
     Active Substance: HERBALS\PLANTAGO OVATA SEED
     Indication: Constipation
     Dosage: 3.5 G (0.5 DAY)
     Route: 048
     Dates: start: 20150312, end: 20150314
  54. FYBOGEL [Concomitant]
     Active Substance: HERBALS\PLANTAGO OVATA SEED
     Dosage: 7 G
     Route: 048
     Dates: start: 20150314, end: 20150314
  55. FYBOGEL [Concomitant]
     Active Substance: HERBALS\PLANTAGO OVATA SEED
     Dosage: 3.5 G (0.5 DAY)
     Route: 048
     Dates: start: 20150314
  56. LANSOPRAZOLE [Concomitant]
     Active Substance: LANSOPRAZOLE
     Indication: Product used for unknown indication
     Dosage: UNK
     Route: 048
     Dates: start: 20150306, end: 20150306
  57. LANSOPRAZOLE [Concomitant]
     Active Substance: LANSOPRAZOLE
     Dosage: 30 MG, QD
     Route: 048
     Dates: start: 20151123
  58. LOPERAMIDE [Concomitant]
     Active Substance: LOPERAMIDE
     Indication: Product used for unknown indication
     Dosage: 4 MG
     Route: 048
     Dates: start: 20150306, end: 20150308
  59. METOCLOPRAMIDE [Concomitant]
     Active Substance: METOCLOPRAMIDE
     Indication: Product used for unknown indication
     Dosage: 30 MG, QW
     Route: 048
     Dates: start: 20150527, end: 20150708
  60. METOCLOPRAMIDE [Concomitant]
     Active Substance: METOCLOPRAMIDE
     Dosage: 10 MG, TID
     Route: 048
     Dates: start: 20170510, end: 2017
  61. METOCLOPRAMIDE [Concomitant]
     Active Substance: METOCLOPRAMIDE
     Dosage: 400 MG
     Route: 048
     Dates: start: 20171001, end: 20171008
  62. METOCLOPRAMIDE [Concomitant]
     Active Substance: METOCLOPRAMIDE
     Dosage: UNK
     Route: 065
     Dates: start: 20170510
  63. METRONIDAZOLE [Concomitant]
     Active Substance: METRONIDAZOLE
     Indication: Product used for unknown indication
     Dosage: 400 MG
     Route: 048
     Dates: start: 20171001, end: 20171008
  64. METRONIDAZOLE [Concomitant]
     Active Substance: METRONIDAZOLE
     Dosage: 500 MG (0.33 DAY)
     Route: 048
     Dates: start: 20171030, end: 20171105
  65. MOVICOL [Concomitant]
     Active Substance: POLYETHYLENE GLYCOL 3350\POTASSIUM CHLORIDE\SODIUM BICARBONATE\SODIUM CHLORIDE
     Indication: Product used for unknown indication
     Dosage: UNK (2 OTHER)
     Route: 048
     Dates: start: 20170510
  66. NAPROXEN [Concomitant]
     Active Substance: NAPROXEN
     Indication: Product used for unknown indication
     Dosage: 250 MG
     Route: 048
     Dates: start: 20141128
  67. NAPROXEN [Concomitant]
     Active Substance: NAPROXEN
     Dosage: 250 MG
     Route: 048
     Dates: start: 20141128, end: 20191015
  68. NAPROXEN [Concomitant]
     Active Substance: NAPROXEN
     Dosage: 250 MG
     Route: 048
     Dates: start: 20170116, end: 20170116
  69. NAPROXEN [Concomitant]
     Active Substance: NAPROXEN
     Dosage: 250 MG
     Route: 048
     Dates: start: 20170802
  70. NAPROXEN [Concomitant]
     Active Substance: NAPROXEN
     Dosage: 250 MG
     Dates: start: 20170802, end: 20170807
  71. OMEPRAZOLE [Concomitant]
     Active Substance: OMEPRAZOLE
     Indication: Product used for unknown indication
     Dosage: 20 MG (0.5 DAY)
     Route: 042
     Dates: start: 20170531, end: 20170605
  72. OMEPRAZOLE [Concomitant]
     Active Substance: OMEPRAZOLE
     Dosage: 20 MG, DAILY
     Route: 060
     Dates: start: 20170616, end: 20170621
  73. OMEPRAZOLE [Concomitant]
     Active Substance: OMEPRAZOLE
     Dosage: 20 MG (0.5 DAY)
     Route: 048
     Dates: start: 20170531, end: 20170605
  74. ONDANSETRON [Concomitant]
     Active Substance: ONDANSETRON
     Indication: Product used for unknown indication
     Dosage: 8 MG (0.5 DAY)
     Route: 042
     Dates: start: 20150527, end: 20150608
  75. ACETAMINOPHEN [Concomitant]
     Active Substance: ACETAMINOPHEN
     Indication: Product used for unknown indication
     Dosage: 500 MG, QID
     Route: 048
     Dates: start: 20171001, end: 20171008
  76. PEGFILGRASTIM [Concomitant]
     Active Substance: PEGFILGRASTIM
     Indication: Product used for unknown indication
     Dosage: 6 MG, Q3W
     Route: 058
     Dates: start: 20150211, end: 20150709
  77. SUDAFED NASAL DECONGESTANT MAXIMUM STRENGTH [Concomitant]
     Active Substance: PSEUDOEPHEDRINE HYDROCHLORIDE
     Indication: Product used for unknown indication
     Dosage: 60 MG
     Route: 048
     Dates: start: 20160113, end: 20160203
  78. ZOMETA [Concomitant]
     Active Substance: ZOLEDRONIC ACID
     Indication: Product used for unknown indication
     Dosage: 3 MG, Q3W
     Route: 042
     Dates: start: 20151111
  79. ZOMETA [Concomitant]
     Active Substance: ZOLEDRONIC ACID
     Dosage: 3 MG
     Route: 065
     Dates: start: 20151111

REACTIONS (17)
  - Tooth abscess [Recovered/Resolved]
  - Neuropathy peripheral [Recovered/Resolved]
  - Dermatitis acneiform [Recovered/Resolved with Sequelae]
  - Anxiety [Recovered/Resolved]
  - Joint stiffness [Recovered/Resolved]
  - Blood calcium decreased [Recovered/Resolved]
  - Onychomadesis [Recovered/Resolved]
  - Tooth loss [Recovered/Resolved]
  - Facial pain [Recovered/Resolved]
  - Skin fissures [Recovered/Resolved]
  - Tooth abscess [Not Recovered/Not Resolved]
  - Tooth infection [Recovered/Resolved]
  - Dry skin [Recovered/Resolved]
  - Arthralgia [Recovered/Resolved]
  - Back pain [Recovered/Resolved]
  - Alopecia [Recovered/Resolved]
  - Weight decreased [Recovered/Resolved]

NARRATIVE: CASE EVENT DATE: 20150325
